FAERS Safety Report 11040043 (Version 2)
Quarter: 2015Q2

REPORT INFORMATION
  Report Type: Spontaneous
  Country: AU (occurrence: AU)
  Receive Date: 20150416
  Receipt Date: 20150501
  Transmission Date: 20150821
  Serious: Yes (Other)
  Sender: FDA-Public Use
  Company Number: AU-BAUSCH-BL-2015-011590

PATIENT
  Age: 76 Year
  Sex: Female

DRUGS (4)
  1. VISUDYNE [Suspect]
     Active Substance: VERTEPORFIN
     Indication: MALIGNANT MELANOMA
     Route: 042
     Dates: start: 20140613
  2. PREDNISOLONE. [Concomitant]
     Active Substance: PREDNISOLONE
     Indication: POLYMYALGIA RHEUMATICA
     Dates: start: 2014
  3. VISUDYNE [Suspect]
     Active Substance: VERTEPORFIN
     Route: 042
     Dates: start: 20140905
  4. VISUDYNE [Suspect]
     Active Substance: VERTEPORFIN
     Indication: CHOROID MELANOMA
     Dosage: SINGLE DOSE
     Route: 042
     Dates: start: 20130723

REACTIONS (2)
  - Melanoma recurrent [Unknown]
  - Intentional product use issue [Unknown]

NARRATIVE: CASE EVENT DATE: 20150310
